FAERS Safety Report 7040048-4 (Version None)
Quarter: 2010Q4

REPORT INFORMATION
  Report Type: 
  Country: None (occurrence: None)
  Receive Date: 20101012
  Receipt Date: 20100928
  Transmission Date: 20110411
  Serious: Yes (Other)
  Sender: FDA-Public Use
  Company Number: PHHY2010JP65386

PATIENT
  Sex: Male

DRUGS (2)
  1. DIOVAN [Suspect]
     Route: 048
  2. LIORESAL [Suspect]
     Route: 048

REACTIONS (1)
  - HYPOGLYCAEMIA [None]
